FAERS Safety Report 4352723-0 (Version None)
Quarter: 2004Q2

REPORT INFORMATION
  Report Type: 
  Country: None (occurrence: None)
  Receive Date: 20040504
  Receipt Date: 20040429
  Transmission Date: 20050107
  Serious: Yes (Other)
  Sender: FDA-Public Use
  Company Number: US-GLAXOSMITHKLINE-A0509155A

PATIENT

DRUGS (2)
  1. PAXIL CR [Suspect]
     Dosage: 37.5MG UNKNOWN
     Route: 048
  2. ESKALITH [Concomitant]
     Route: 048

REACTIONS (6)
  - DRUG INEFFECTIVE [None]
  - DRUG WITHDRAWAL SYNDROME [None]
  - INSOMNIA [None]
  - MUSCULAR WEAKNESS [None]
  - SUICIDE ATTEMPT [None]
  - WEIGHT INCREASED [None]
